FAERS Safety Report 10747982 (Version 2)
Quarter: 2015Q1

REPORT INFORMATION
  Report Type: Spontaneous
  Country: US (occurrence: US)
  Receive Date: 20150129
  Receipt Date: 20150225
  Transmission Date: 20150721
  Serious: Yes (Other)
  Sender: FDA-Public Use
  Company Number: US-ASTRAZENECA-2015SE07335

PATIENT
  Age: 859 Month
  Sex: Female
  Weight: 39.9 kg

DRUGS (6)
  1. PROAIR RESCUE INHALER [Concomitant]
     Dosage: DAILY
  2. PULMICORT FLEXHALER [Suspect]
     Active Substance: BUDESONIDE
     Indication: CHRONIC OBSTRUCTIVE PULMONARY DISEASE
     Dosage: 180MCG 1 PUFFS TWICE DAILY
     Route: 055
  3. PULMICORT FLEXHALER [Suspect]
     Active Substance: BUDESONIDE
     Indication: CHRONIC OBSTRUCTIVE PULMONARY DISEASE
     Dosage: 180MCG 2 PUFFS TWICE DAILY
     Route: 055
     Dates: start: 201407
  4. ALBUTEROL NEBULIZER [Concomitant]
     Active Substance: ALBUTEROL
     Dosage: THREE TIMES A DAY
  5. FUROSIMIDE [Concomitant]
     Active Substance: FUROSEMIDE
     Indication: PULMONARY OEDEMA
  6. SPIRIVA [Concomitant]
     Active Substance: TIOTROPIUM BROMIDE MONOHYDRATE
     Indication: CHRONIC OBSTRUCTIVE PULMONARY DISEASE
     Dosage: DAILY

REACTIONS (6)
  - Dyspnoea [Unknown]
  - Off label use [Unknown]
  - Intentional product misuse [Unknown]
  - Gait disturbance [Unknown]
  - Pneumonia [Recovered/Resolved]
  - Bronchospasm [Recovered/Resolved]

NARRATIVE: CASE EVENT DATE: 201407
